FAERS Safety Report 5027756-1 (Version None)
Quarter: 2006Q2

REPORT INFORMATION
  Report Type: 
  Country: None (occurrence: None)
  Receive Date: 20060428
  Receipt Date: 20060123
  Transmission Date: 20061013
  Serious: Yes (Death)
  Sender: FDA-Public Use
  Company Number: COT_0390_2006

PATIENT
  Age: 64 Year
  Sex: Female
  Weight: 52.1637 kg

DRUGS (13)
  1. VENTAVIS [Suspect]
     Indication: PULMONARY HYPERTENSION
     Dosage: 5 MCG 7XD IH
     Route: 055
     Dates: start: 20050706
  2. TRENTAL [Concomitant]
  3. MOTRIN [Concomitant]
  4. ASTELIN [Concomitant]
  5. BENEFIBER [Concomitant]
  6. PREVACID [Concomitant]
  7. FUROSEMIDE [Concomitant]
  8. SITAXSENTAN [Concomitant]
  9. NEXIUM [Concomitant]
  10. DARVOCET [Concomitant]
  11. MECLIZINE [Concomitant]
  12. ALLEGRA [Concomitant]
  13. TYLOX [Concomitant]

REACTIONS (5)
  - DIZZINESS [None]
  - DYSPNOEA EXERTIONAL [None]
  - OXYGEN SATURATION DECREASED [None]
  - SCLERODERMA [None]
  - SKIN ULCER [None]
